FAERS Safety Report 9432324 (Version 1)
Quarter: 2013Q3

REPORT INFORMATION
  Report Type: Spontaneous
  Country: US (occurrence: None)
  Receive Date: 20130730
  Receipt Date: 20130730
  Transmission Date: 20140515
  Serious: Yes (Other)
  Sender: FDA-Public Use
  Company Number: None

PATIENT
  Sex: Female
  Weight: 46 kg

DRUGS (1)
  1. KEPPRA [Suspect]
     Dosage: 360 4 PILLS 3X DAY ORALLY
     Route: 048
     Dates: start: 201105

REACTIONS (3)
  - Drug ineffective [None]
  - Convulsion [None]
  - Product substitution issue [None]
